FAERS Safety Report 9167941 (Version 1)
Quarter: 2013Q1

REPORT INFORMATION
  Report Type: Spontaneous
  Country: GB (occurrence: None)
  Receive Date: 20130305
  Receipt Date: 20130305
  Transmission Date: 20140127
  Serious: Yes (Disabling)
  Sender: FDA-Public Use
  Company Number: AUR-APL-2013-01901

PATIENT
  Age: 71 Year
  Sex: Male
  Weight: 62 kg

DRUGS (3)
  1. AMOXICILLIN\CLAVULANIC ACID [Suspect]
     Indication: RESPIRATORY TRACT INFECTION
     Route: 048
     Dates: start: 20121224
  2. NATECAL D3 (LEKOVITCA) [Concomitant]
  3. RISEDRONATE (RISEDRONATE SODIUM) [Concomitant]

REACTIONS (2)
  - Jaundice [None]
  - Liver function test abnormal [None]
